FAERS Safety Report 4921490-1 (Version None)
Quarter: 2006Q1

REPORT INFORMATION
  Report Type: 
  Country: None (occurrence: None)
  Receive Date: 20060224
  Receipt Date: 20050831
  Transmission Date: 20060701
  Serious: Yes (Other)
  Sender: FDA-Public Use
  Company Number: PHHO2005JP13901

PATIENT
  Age: 80 Year
  Sex: Female

DRUGS (4)
  1. TORSEMIDE [Concomitant]
     Indication: HYPERTENSION
     Dosage: 4 MG, QD
     Route: 048
     Dates: start: 20030910, end: 20040402
  2. GASTER D [Concomitant]
     Indication: GASTRIC ULCER
     Dosage: 10 MG, QD
     Route: 048
     Dates: start: 20030910, end: 20050402
  3. EPADEL [Concomitant]
     Indication: HYPERCHOLESTEROLAEMIA
     Dosage: 1800 MG, QD
     Route: 048
     Dates: start: 20030910, end: 20040402
  4. DIOVAN [Suspect]
     Indication: HYPERTENSION
     Dosage: 80 MG, QD
     Route: 048
     Dates: start: 20030910

REACTIONS (3)
  - AORTIC VALVE INCOMPETENCE [None]
  - CONCOMITANT DISEASE PROGRESSION [None]
  - SUPRAVENTRICULAR EXTRASYSTOLES [None]
